FAERS Safety Report 18642966 (Version 2)
Quarter: 2021Q1

REPORT INFORMATION
  Report Type: Spontaneous
  Country: SG (occurrence: SG)
  Receive Date: 20201221
  Receipt Date: 20210113
  Transmission Date: 20210419
  Serious: Yes (Life-Threatening, Hospitalization, Other)
  Sender: FDA-Public Use
  Company Number: SG-TEVA-2020-SG-1861064

PATIENT
  Sex: Male

DRUGS (3)
  1. PREDNISOLONE. [Suspect]
     Active Substance: PREDNISOLONE
     Indication: ARTHRALGIA
     Dosage: HERBAL MEDICATION CONTAINING PURE THAI HERBS, PREDNISOLONE, CYPROHEPTADINE AND PIROXICAM
     Route: 065
  2. CYPROHEPTADINE. [Suspect]
     Active Substance: CYPROHEPTADINE
     Indication: ARTHRALGIA
     Dosage: HERBAL MEDICATION CONTAINING PURE THAI HERBS, PREDNISOLONE, CYPROHEPTADINE AND PIROXICAM
     Route: 065
  3. PIROXICAM. [Suspect]
     Active Substance: PIROXICAM
     Indication: ARTHRALGIA
     Dosage: HERBAL MEDICATION CONTAINING PURE THAI HERBS, PREDNISOLONE, CYPROHEPTADINE AND PIROXICAM
     Route: 065

REACTIONS (8)
  - Osteonecrosis [Recovered/Resolved]
  - Haemodynamic instability [Recovering/Resolving]
  - Acidosis [Recovering/Resolving]
  - Weight increased [Unknown]
  - Increased appetite [Unknown]
  - Epigastric discomfort [Unknown]
  - Post procedural hypotension [Recovering/Resolving]
  - Adrenal insufficiency [Recovering/Resolving]
